FAERS Safety Report 13454663 (Version 1)
Quarter: 2017Q2

REPORT INFORMATION
  Report Type: Spontaneous
  Country: US (occurrence: US)
  Receive Date: 20170418
  Receipt Date: 20170418
  Transmission Date: 20170830
  Serious: No
  Sender: FDA-Public Use
  Company Number: US-ALLERGAN-1680870US

PATIENT
  Age: 64 Year
  Sex: Female

DRUGS (1)
  1. LATISSE [Suspect]
     Active Substance: BIMATOPROST
     Indication: GROWTH OF EYELASHES
     Dosage: UNK
     Route: 065
     Dates: end: 201612

REACTIONS (2)
  - Eyelid rash [Recovered/Resolved]
  - Eyelids pruritus [Recovered/Resolved]

NARRATIVE: CASE EVENT DATE: 201612
